FAERS Safety Report 5345695-3 (Version None)
Quarter: 2007Q2

REPORT INFORMATION
  Report Type: 
  Country: None (occurrence: None)
  Receive Date: 20070425
  Receipt Date: 20070125
  Transmission Date: 20071010
  Serious: Yes (Other)
  Sender: FDA-Public Use
  Company Number: 2007-153652-NL

PATIENT
  Age: 81 Year
  Sex: Female

DRUGS (1)
  1. ZEMURON [Suspect]
     Dosage: 80 MG INTRAVENOUS (NOS), OVER THREE DOSES
     Route: 042
     Dates: start: 20070124, end: 20070124

REACTIONS (2)
  - DRUG INEFFECTIVE [None]
  - NEUROMUSCULAR BLOCK PROLONGED [None]
